FAERS Safety Report 4756255-7 (Version None)
Quarter: 2005Q3

REPORT INFORMATION
  Report Type: 
  Country: None (occurrence: None)
  Receive Date: 20050830
  Receipt Date: 20050516
  Transmission Date: 20060218
  Serious: No
  Sender: FDA-Public Use
  Company Number: US-GLAXOSMITHKLINE-A0558781A

PATIENT
  Sex: Male

DRUGS (4)
  1. WELLBUTRIN XL [Suspect]
     Indication: DEPRESSION
     Dosage: 300MG PER DAY
     Route: 048
  2. NEXIUM [Concomitant]
  3. ZYRTEC [Concomitant]
  4. ALAVERT [Concomitant]

REACTIONS (1)
  - NAUSEA [None]
